FAERS Safety Report 5419692-3 (Version None)
Quarter: 2007Q3

REPORT INFORMATION
  Report Type: 
  Country: None (occurrence: None)
  Receive Date: 20070820
  Receipt Date: 20070820
  Transmission Date: 20080115
  Serious: Yes (Death, Hospitalization)
  Sender: FDA-Public Use
  Company Number: DE-BRISTOL-MYERS SQUIBB COMPANY-13623640

PATIENT
  Age: 73 Year
  Sex: Male

DRUGS (5)
  1. CISPLATIN [Suspect]
     Indication: GASTRIC CANCER
     Route: 041
     Dates: start: 20060407, end: 20060407
  2. FLUOROURACIL [Suspect]
     Indication: GASTRIC CANCER
     Route: 041
     Dates: start: 20060407, end: 20060412
  3. PREDNISONE [Concomitant]
     Indication: ANOREXIA
     Route: 048
     Dates: start: 20060317
  4. LAXOBERAL [Concomitant]
     Indication: CONSTIPATION PROPHYLAXIS
     Route: 048
     Dates: start: 20060324
  5. NYSTADERM [Concomitant]
     Indication: ANTIFUNGAL PROPHYLAXIS
     Route: 048
     Dates: start: 20060317

REACTIONS (6)
  - ANAEMIA [None]
  - DIARRHOEA [None]
  - LEUKOPENIA [None]
  - MUCOSAL INFLAMMATION [None]
  - SEPSIS [None]
  - THROMBOCYTOPENIA [None]
